FAERS Safety Report 15158535 (Version 1)
Quarter: 2018Q3

REPORT INFORMATION
  Report Type: Spontaneous
  Country: GB (occurrence: US)
  Receive Date: 20180718
  Receipt Date: 20180718
  Transmission Date: 20181010
  Serious: Yes (Life-Threatening, Hospitalization)
  Sender: FDA-Public Use
  Company Number: GB-MYLANLABS-2018M1051341

PATIENT
  Sex: Female

DRUGS (3)
  1. AZITHROMYCIN ANHYDROUS. [Suspect]
     Active Substance: AZITHROMYCIN ANHYDROUS
     Indication: PRODUCT USED FOR UNKNOWN INDICATION
     Dosage: UNK
  2. FAMOTIDINE. [Concomitant]
     Active Substance: FAMOTIDINE
     Indication: PRODUCT USED FOR UNKNOWN INDICATION
     Dosage: UNK
  3. MOXIFLOXACIN. [Suspect]
     Active Substance: MOXIFLOXACIN
     Indication: PNEUMONIA
     Dosage: 400 MG, QD
     Route: 042

REACTIONS (20)
  - Dizziness [Unknown]
  - Nausea [Unknown]
  - Ventricular tachycardia [Unknown]
  - Electrocardiogram QT prolonged [Unknown]
  - Bundle branch block left [Unknown]
  - Transferrin saturation decreased [Unknown]
  - Cardio-respiratory arrest [Unknown]
  - Pulmonary congestion [Unknown]
  - Loss of consciousness [Unknown]
  - Blood iron decreased [Unknown]
  - Pulse absent [Unknown]
  - Cardiac arrest [Unknown]
  - Torsade de pointes [Unknown]
  - Angina pectoris [Unknown]
  - Anaemia [Unknown]
  - Pain [Unknown]
  - Syncope [Unknown]
  - Vomiting [Unknown]
  - Ventricular fibrillation [Unknown]
  - Arrhythmia [Unknown]
